FAERS Safety Report 14003173 (Version 1)
Quarter: 2017Q3

REPORT INFORMATION
  Report Type: Report from Study
  Country: ES (occurrence: ES)
  Receive Date: 20170922
  Receipt Date: 20170922
  Transmission Date: 20171128
  Serious: Yes (Death, Hospitalization)
  Sender: FDA-Public Use
  Company Number: ES-PFIZER INC-2017405834

PATIENT
  Age: 79 Year
  Sex: Male

DRUGS (6)
  1. ACFOL [Concomitant]
     Active Substance: FOLIC ACID
     Route: 048
     Dates: start: 2009, end: 20161219
  2. BISOPROLOL [Concomitant]
     Active Substance: BISOPROLOL
     Route: 048
     Dates: start: 2004, end: 20161219
  3. METOTREXATO WYETH [Suspect]
     Active Substance: METHOTREXATE SODIUM
     Indication: PSORIASIS
     Route: 048
     Dates: start: 2009, end: 20161214
  4. ENALAPRIL/ HIDROCLOROTIAZIDA PENSA [Concomitant]
     Indication: BLOOD PRESSURE INCREASED
     Route: 048
     Dates: end: 20161219
  5. ATORVASTATIN [Concomitant]
     Active Substance: ATORVASTATIN
     Indication: DYSLIPIDAEMIA
     Route: 048
     Dates: end: 20161219
  6. SINTROM [Concomitant]
     Active Substance: ACENOCOUMAROL
     Route: 048
     Dates: start: 2004, end: 20161214

REACTIONS (1)
  - Meningitis listeria [Fatal]

NARRATIVE: CASE EVENT DATE: 20161213
